FAERS Safety Report 6849262-1 (Version None)
Quarter: 2010Q3

REPORT INFORMATION
  Report Type: 
  Country: None (occurrence: None)
  Receive Date: 20100716
  Receipt Date: 20071219
  Transmission Date: 20110219
  Serious: No
  Sender: FDA-Public Use
  Company Number: US-PFIZER INC-2007081052

PATIENT
  Sex: Female
  Weight: 76.2 kg

DRUGS (8)
  1. CHANTIX [Suspect]
     Indication: SMOKING CESSATION THERAPY
     Route: 048
     Dates: start: 20061101
  2. NORVASC [Concomitant]
  3. VYTORIN [Concomitant]
  4. ZIAC [Concomitant]
  5. TRIAMTERENE [Concomitant]
  6. ACETYLSALICYLIC ACID [Concomitant]
  7. PREVACID [Concomitant]
  8. MULTI-VITAMINS [Concomitant]

REACTIONS (2)
  - ABDOMINAL PAIN UPPER [None]
  - DRUG INEFFECTIVE [None]
